FAERS Safety Report 10632342 (Version 1)
Quarter: 2014Q4

REPORT INFORMATION
  Report Type: Spontaneous
  Country: US (occurrence: US)
  Receive Date: 20141205
  Receipt Date: 20141205
  Transmission Date: 20150529
  Serious: No
  Sender: FDA-Public Use
  Company Number: US-BRISTOL-MYERS SQUIBB COMPANY-21202080

PATIENT
  Age: 64 Year
  Sex: Male

DRUGS (3)
  1. HUMIRA [Concomitant]
     Active Substance: ADALIMUMAB
  2. ENBREL [Concomitant]
     Active Substance: ETANERCEPT
  3. ORENCIA [Suspect]
     Active Substance: ABATACEPT

REACTIONS (1)
  - Circumstance or information capable of leading to device use error [Unknown]
